FAERS Safety Report 6437212-1 (Version None)
Quarter: 2009Q4

REPORT INFORMATION
  Report Type: 
  Country: None (occurrence: None)
  Receive Date: 20091112
  Receipt Date: 20090824
  Transmission Date: 20100525
  Serious: No
  Sender: FDA-Public Use
  Company Number: A0803793A

PATIENT
  Age: 49 Year
  Sex: Female

DRUGS (4)
  1. TREXIMET [Suspect]
     Indication: MIGRAINE
     Route: 048
     Dates: start: 20090301
  2. LEXAPRO [Concomitant]
  3. NEXIUM [Concomitant]
  4. PRAVASTATIN [Concomitant]

REACTIONS (1)
  - FATIGUE [None]
